FAERS Safety Report 4491757-2 (Version None)
Quarter: 2004Q4

REPORT INFORMATION
  Report Type: 
  Country: None (occurrence: None)
  Receive Date: 20041101
  Receipt Date: 20041018
  Transmission Date: 20050328
  Serious: Yes (Other)
  Sender: FDA-Public Use
  Company Number: 2004080987

PATIENT
  Age: 71 Year
  Sex: Female
  Weight: 53.5244 kg

DRUGS (7)
  1. LIPITOR [Suspect]
     Indication: BLOOD CHOLESTEROL INCREASED
     Dosage: 10 MG (10 MG, 1 IN 1 D), ORAL
     Route: 048
  2. LIPITOR [Suspect]
     Indication: LOW DENSITY LIPOPROTEIN INCREASED
     Dosage: 10 MG (10 MG, 1 IN 1 D), ORAL
     Route: 048
  3. PROPRANOLOL [Concomitant]
  4. ESTROGENS (ESTROGENS) [Concomitant]
  5. PROGESTERONE [Concomitant]
  6. ALENDRONATE SODIUM [Concomitant]
  7. VITAMINS (VITAMINS) [Concomitant]

REACTIONS (2)
  - HYPERGAMMAGLOBULINAEMIA BENIGN MONOCLONAL [None]
  - TENDONITIS [None]
